FAERS Safety Report 26068696 (Version 1)
Quarter: 2025Q4

REPORT INFORMATION
  Report Type: Spontaneous
  Country: JP (occurrence: JP)
  Receive Date: 20251120
  Receipt Date: 20251120
  Transmission Date: 20260118
  Serious: Yes (Other)
  Sender: AMGEN
  Company Number: JP-DSJP-DS-2025-166378-

PATIENT
  Age: 87 Year
  Sex: Female

DRUGS (9)
  1. DENOSUMAB [Suspect]
     Active Substance: DENOSUMAB
     Indication: Osteoporosis
     Dosage: 60 MG, ONCE EVERY 6 MO
     Route: 058
     Dates: start: 202105
  2. PRASUGREL HYDROCHLORIDE [Suspect]
     Active Substance: PRASUGREL HYDROCHLORIDE
     Indication: Myocardial infarction
     Dosage: 2.5 MG, QD
     Route: 048
  3. CALCIUM POLYCARBOPHIL [Suspect]
     Active Substance: CALCIUM POLYCARBOPHIL
     Indication: Irritable bowel syndrome
     Dosage: 1500 MG/DAY
     Route: 048
  4. ELDECALCITOL [Suspect]
     Active Substance: ELDECALCITOL
     Indication: Product used for unknown indication
     Dosage: UNK
     Route: 065
  5. ELDECALCITOL [Suspect]
     Active Substance: ELDECALCITOL
     Dosage: 0.75 UG/DAY
     Route: 065
  6. TOLVAPTAN [Concomitant]
     Active Substance: TOLVAPTAN
     Indication: Cardiac failure chronic
     Dosage: UNK
     Route: 048
  7. PIMOBENDAN [Concomitant]
     Active Substance: PIMOBENDAN
     Indication: Cardiac failure chronic
     Dosage: UNK
     Route: 048
  8. AZOSEMIDE [Concomitant]
     Active Substance: AZOSEMIDE
     Indication: Cardiac failure chronic
     Dosage: UNK
     Route: 048
  9. DAPAGLIFLOZIN PROPANEDIOL [Concomitant]
     Active Substance: DAPAGLIFLOZIN PROPANEDIOL
     Indication: Cardiac failure chronic
     Dosage: UNK
     Route: 048

REACTIONS (3)
  - Femur fracture [Unknown]
  - Irritable bowel syndrome [Unknown]
  - Hypercalcaemia [Recovering/Resolving]

NARRATIVE: CASE EVENT DATE: 20240901
